FAERS Safety Report 24869742 (Version 1)
Quarter: 2025Q1

REPORT INFORMATION
  Report Type: Report from Study
  Country: BY (occurrence: BY)
  Receive Date: 20250121
  Receipt Date: 20250121
  Transmission Date: 20250408
  Serious: Yes (Death, Hospitalization)
  Sender: MYLAN
  Company Number: BY-MYLANLABS-2025M1005169

PATIENT
  Age: 64 Year
  Sex: Male
  Weight: 72 kg

DRUGS (11)
  1. PRETOMANID [Suspect]
     Active Substance: PRETOMANID
     Indication: Antibiotic prophylaxis
     Dosage: 200 MILLIGRAM, QD (200 MG OD PO)
     Route: 048
     Dates: start: 20230627, end: 20231211
  2. BEDAQUILINE [Suspect]
     Active Substance: BEDAQUILINE
     Indication: Antibiotic prophylaxis
     Dosage: 400 MILLIGRAM, QD (400 MG OD FOR 2 WEEKS)
     Route: 048
     Dates: start: 20230627, end: 20231211
  3. BEDAQUILINE [Suspect]
     Active Substance: BEDAQUILINE
     Dosage: 200 MILLIGRAM, 3XW (200 MG TIW)
     Route: 048
     Dates: start: 20230627, end: 20231211
  4. LINEZOLID [Suspect]
     Active Substance: LINEZOLID
     Indication: Antibiotic prophylaxis
     Dosage: 600 MILLIGRAM, QD (600 MG OD PO FOR 112 DOSES)
     Route: 048
     Dates: start: 20230627, end: 20231211
  5. LINEZOLID [Suspect]
     Active Substance: LINEZOLID
     Dosage: 300 MILLIGRAM, QD (THEN 300 MG OD)
     Route: 048
     Dates: start: 20230627, end: 20231211
  6. MOXIFLOXACIN [Suspect]
     Active Substance: MOXIFLOXACIN
     Indication: Antibiotic prophylaxis
     Dosage: 400 MILLIGRAM, QD (400 MG OD PO)
     Route: 048
     Dates: start: 20230627, end: 20231211
  7. ASPIKARD [Concomitant]
     Indication: Myocardial ischaemia
     Dosage: 150 MILLIGRAM, QD (DAILY DOSE)
     Route: 048
     Dates: start: 20230627, end: 20240422
  8. GLICLAZIDE [Concomitant]
     Active Substance: GLICLAZIDE
     Indication: Diabetes mellitus
     Dosage: 60 MILLIGRAM, QD (DAILY DOSE)
     Route: 048
     Dates: start: 20230627, end: 20240428
  9. ENALAPRIL [Concomitant]
     Active Substance: ENALAPRIL
     Indication: Hypertension
     Dosage: 10 MILLIGRAM, QD (DAILY DOSE)
     Route: 048
     Dates: start: 20230628, end: 20240422
  10. BISOPROLOL [Concomitant]
     Active Substance: BISOPROLOL
     Indication: Myocardial ischaemia
     Dosage: 2.5 MILLIGRAM, QD (DAILY DOSE)
     Route: 048
     Dates: start: 20230628, end: 20240420
  11. PYRIDOXINE [Concomitant]
     Active Substance: PYRIDOXINE
     Indication: Prophylaxis
     Dosage: 100 MILLIGRAM, QD (DAILY DOSE)
     Route: 048
     Dates: start: 20230622, end: 20231211

REACTIONS (1)
  - Cerebrovascular accident [Fatal]

NARRATIVE: CASE EVENT DATE: 20240428
